FAERS Safety Report 21951024 (Version 1)
Quarter: 2023Q1

REPORT INFORMATION
  Report Type: Spontaneous
  Country: KR (occurrence: KR)
  Receive Date: 20230203
  Receipt Date: 20230203
  Transmission Date: 20230417
  Serious: Yes (Other)
  Sender: FDA-Public Use
  Company Number: KR-PFIZER INC-202300045427

PATIENT
  Age: 62 Year
  Sex: Female

DRUGS (1)
  1. PAXLOVID [Suspect]
     Active Substance: NIRMATRELVIR\RITONAVIR
     Indication: COVID-19 treatment
     Dosage: UNK
     Route: 048

REACTIONS (6)
  - Haematochezia [Unknown]
  - Epistaxis [Unknown]
  - Diarrhoea [Unknown]
  - Abdominal pain upper [Unknown]
  - Faeces hard [Unknown]
  - Anal haemorrhage [Unknown]
